FAERS Safety Report 19168980 (Version 1)
Quarter: 2021Q2

REPORT INFORMATION
  Report Type: Spontaneous
  Country: US (occurrence: US)
  Receive Date: 20210422
  Receipt Date: 20210422
  Transmission Date: 20210717
  Serious: Yes (Hospitalization)
  Sender: FDA-Public Use
  Company Number: US-PRINSTON PHARMACEUTICAL INC.-2021PRN00143

PATIENT
  Age: 64 Year
  Sex: Female

DRUGS (9)
  1. CYCLOBENZAPRINE HYDROCHLORIDE. [Suspect]
     Active Substance: CYCLOBENZAPRINE HYDROCHLORIDE
     Dosage: 10 MG, 1X/DAY
     Route: 065
  2. SITAGLIPTIN [Concomitant]
     Active Substance: SITAGLIPTIN
     Dosage: 25 MG, 1X/DAY
     Route: 065
  3. LURASIDONE [Concomitant]
     Active Substance: LURASIDONE
     Dosage: 80 MG, 1X/DAY
     Route: 065
  4. CLONAZEPAM. [Concomitant]
     Active Substance: CLONAZEPAM
     Dosage: 0.5 MG, 1X/DAY
     Route: 065
  5. ERENUMAB [Concomitant]
     Active Substance: ERENUMAB
     Dosage: 70 MG, 1X/MONTH
     Route: 065
  6. BENZTROPINE. [Suspect]
     Active Substance: BENZTROPINE
     Dosage: 1 MG, 3X/DAY
     Route: 065
  7. TOPIRAMATE. [Suspect]
     Active Substance: TOPIRAMATE
     Dosage: 100 MG, 1X/DAY; ^EXTENDED RELEASE^
     Route: 065
  8. AMITRIPTYLINE [Suspect]
     Active Substance: AMITRIPTYLINE
     Dosage: 175 MG, 1X/DAY
     Route: 065
  9. TRAZODONE [Suspect]
     Active Substance: TRAZODONE HYDROCHLORIDE
     Dosage: 100 MG, 1X/DAY
     Route: 065

REACTIONS (2)
  - Hyperthermia [Recovered/Resolved]
  - Drug interaction [Not Recovered/Not Resolved]
